FAERS Safety Report 16189636 (Version 1)
Quarter: 2019Q2

REPORT INFORMATION
  Report Type: Spontaneous
  Country: US (occurrence: US)
  Receive Date: 20190411
  Receipt Date: 20190411
  Transmission Date: 20190711
  Serious: No
  Sender: FDA-Public Use
  Company Number: None

PATIENT
  Age: 8 Year
  Sex: Male
  Weight: 20.25 kg

DRUGS (1)
  1. METHYLPHENIDATE HCL ER 18MG TBCR [Suspect]
     Active Substance: METHYLPHENIDATE HYDROCHLORIDE
     Indication: ATTENTION DEFICIT/HYPERACTIVITY DISORDER
     Dosage: ?          QUANTITY:90 TABLET(S);?
     Route: 048
     Dates: start: 20190327, end: 20190411

REACTIONS (4)
  - Therapeutic response changed [None]
  - Product substitution issue [None]
  - Drug ineffective [None]
  - Impulse-control disorder [None]

NARRATIVE: CASE EVENT DATE: 20190411
